FAERS Safety Report 19840090 (Version 1)
Quarter: 2021Q3

REPORT INFORMATION
  Report Type: Spontaneous
  Country: CN (occurrence: CN)
  Receive Date: 20210915
  Receipt Date: 20210915
  Transmission Date: 20211014
  Serious: Yes (Other)
  Sender: FDA-Public Use
  Company Number: CN-PFIZER INC-202101146556

PATIENT
  Age: 49 Year
  Sex: Male
  Weight: 65 kg

DRUGS (2)
  1. PACLITAXEL. [Suspect]
     Active Substance: PACLITAXEL
     Indication: LUNG NEOPLASM MALIGNANT
     Dosage: 200 MG, 1X/DAY
     Route: 041
     Dates: start: 20210819, end: 20210820
  2. LUBEI [Concomitant]
     Indication: LUNG NEOPLASM MALIGNANT
     Dosage: 50 MG, 1X/DAY
     Route: 041
     Dates: start: 20210819, end: 20210820

REACTIONS (2)
  - Pain in extremity [Recovering/Resolving]
  - White blood cell count decreased [Unknown]

NARRATIVE: CASE EVENT DATE: 20210822
